FAERS Safety Report 12456104 (Version 1)
Quarter: 2016Q2

REPORT INFORMATION
  Report Type: Spontaneous
  Country: US (occurrence: US)
  Receive Date: 20160610
  Receipt Date: 20160610
  Transmission Date: 20160815
  Serious: Yes (Other)
  Sender: FDA-Public Use
  Company Number: US-ASTRAZENECA-2016SE60751

PATIENT
  Age: 675 Month
  Sex: Female
  Weight: 68 kg

DRUGS (8)
  1. BYDUREON [Suspect]
     Active Substance: EXENATIDE
     Indication: TYPE 2 DIABETES MELLITUS
     Route: 058
     Dates: start: 201604, end: 20160523
  2. PEPCID [Concomitant]
     Active Substance: FAMOTIDINE
     Indication: MASTOCYTOSIS
     Dosage: TWICE A DAY
     Route: 048
     Dates: start: 2015
  3. PROVENTIL [Concomitant]
     Active Substance: ALBUTEROL
     Indication: ASTHMA
     Dosage: INTERMITTENT
     Route: 055
     Dates: start: 2015
  4. CLARITIN [Concomitant]
     Active Substance: LORATADINE
     Indication: MASTOCYTOSIS
     Dosage: DAILY
     Route: 048
     Dates: start: 2015
  5. LOTRIL [Concomitant]
     Active Substance: ENALAPRIL MALEATE
     Indication: HYPERTENSION
     Route: 048
     Dates: start: 2001
  6. GLUCOPHAGE [Concomitant]
     Active Substance: METFORMIN HYDROCHLORIDE
     Indication: TYPE 2 DIABETES MELLITUS
     Dosage: TWICE A DAY
     Route: 048
     Dates: start: 2008
  7. SYMBICORT [Suspect]
     Active Substance: BUDESONIDE\FORMOTEROL FUMARATE DIHYDRATE
     Indication: ASTHMA
     Dosage: TWICE A DAY
     Route: 055
     Dates: start: 2015
  8. TRADJENTA [Concomitant]
     Active Substance: LINAGLIPTIN
     Indication: TYPE 2 DIABETES MELLITUS
     Dates: start: 2014

REACTIONS (4)
  - Nausea [Not Recovered/Not Resolved]
  - Nasal congestion [Unknown]
  - Vomiting [Not Recovered/Not Resolved]
  - Anaphylactic reaction [Unknown]

NARRATIVE: CASE EVENT DATE: 201604
